FAERS Safety Report 5714461-9 (Version None)
Quarter: 2008Q2

REPORT INFORMATION
  Report Type: 
  Country: None (occurrence: None)
  Receive Date: 20080423
  Receipt Date: 20080415
  Transmission Date: 20081010
  Serious: Yes (Death, Hospitalization)
  Sender: FDA-Public Use
  Company Number: JP-JNJFOC-20070702942

PATIENT
  Sex: Male
  Weight: 8.4 kg

DRUGS (6)
  1. REMICADE [Suspect]
     Route: 042
  2. REMICADE [Suspect]
     Indication: CROHN'S DISEASE
     Route: 042
  3. CARBENIN [Suspect]
     Indication: DRUG USE FOR UNKNOWN INDICATION
  4. TARGOCID [Suspect]
     Indication: DRUG USE FOR UNKNOWN INDICATION
  5. PREDONINE [Concomitant]
     Route: 065
  6. PENTASA [Concomitant]
     Route: 065

REACTIONS (3)
  - CATHETER RELATED INFECTION [None]
  - CEREBRAL HAEMORRHAGE [None]
  - SEPSIS [None]
